FAERS Safety Report 14161548 (Version 2)
Quarter: 2017Q4

REPORT INFORMATION
  Report Type: Report from Study
  Country: CA (occurrence: CA)
  Receive Date: 20171106
  Receipt Date: 20171109
  Transmission Date: 20180321
  Serious: Yes (Hospitalization)
  Sender: FDA-Public Use
  Company Number: CA-JNJFOC-20171103816

PATIENT
  Age: 13 Year
  Sex: Female
  Weight: 55.3 kg

DRUGS (6)
  1. CYPROHEPTADINE. [Concomitant]
     Active Substance: CYPROHEPTADINE
     Route: 065
  2. SERTRALINE [Concomitant]
     Active Substance: SERTRALINE HYDROCHLORIDE
     Route: 065
  3. REMICADE [Suspect]
     Active Substance: INFLIXIMAB
     Indication: INFLAMMATORY BOWEL DISEASE
     Route: 042
     Dates: start: 20150902
  4. LANSOPRAZOLE. [Concomitant]
     Active Substance: LANSOPRAZOLE
     Route: 065
  5. ENTYVIO [Concomitant]
     Active Substance: VEDOLIZUMAB
     Route: 065
     Dates: start: 20160608
  6. HYDROCORTISONE. [Concomitant]
     Active Substance: HYDROCORTISONE
     Route: 065

REACTIONS (1)
  - Inflammatory bowel disease [Recovered/Resolved]

NARRATIVE: CASE EVENT DATE: 20170823
